FAERS Safety Report 6815596-X (Version None)
Quarter: 2010Q3

REPORT INFORMATION
  Report Type: 
  Country: None (occurrence: None)
  Receive Date: 20100702
  Receipt Date: 20100623
  Transmission Date: 20110219
  Serious: No
  Sender: FDA-Public Use
  Company Number: AR-ELI_LILLY_AND_COMPANY-AR201006007171

PATIENT
  Age: 53 Year
  Sex: Male

DRUGS (2)
  1. CIALIS [Suspect]
     Dosage: 5 MG, AS NEEDED
     Route: 065
  2. CIALIS [Suspect]
     Dosage: 20 MG, AS NEEDED
     Route: 065

REACTIONS (2)
  - EYE PAIN [None]
  - OFF LABEL USE [None]
